FAERS Safety Report 19049783 (Version 2)
Quarter: 2021Q2

REPORT INFORMATION
  Report Type: Spontaneous
  Country: CA (occurrence: CA)
  Receive Date: 20210323
  Receipt Date: 20210504
  Transmission Date: 20210717
  Serious: Yes (Hospitalization, Other)
  Sender: FDA-Public Use
  Company Number: CA-009507513-2103CAN005197

PATIENT
  Age: 59 Year
  Sex: Female

DRUGS (2)
  1. KEYTRUDA [Suspect]
     Active Substance: PEMBROLIZUMAB
     Indication: NON-SMALL CELL LUNG CANCER
     Dosage: 2MG/KG, Q3 WEEKS
     Route: 042
     Dates: start: 20191204, end: 20191204
  2. KEYTRUDA [Suspect]
     Active Substance: PEMBROLIZUMAB
     Indication: LUNG ADENOCARCINOMA
     Dosage: 2 MG/KG, Q3 WEEKS
     Route: 042
     Dates: start: 20200826, end: 20210329

REACTIONS (5)
  - Dermatomyositis [Unknown]
  - Malignant neoplasm progression [Unknown]
  - Product use issue [Unknown]
  - Paraneoplastic dermatomyositis [Recovered/Resolved with Sequelae]
  - Dermatomyositis [Recovered/Resolved]

NARRATIVE: CASE EVENT DATE: 20191224
